FAERS Safety Report 10058628 (Version 2)
Quarter: 2014Q2

REPORT INFORMATION
  Report Type: Spontaneous
  Country: GB (occurrence: GB)
  Receive Date: 20140404
  Receipt Date: 20140404
  Transmission Date: 20141212
  Serious: Yes (Other)
  Sender: FDA-Public Use
  Company Number: PHFR2012GB005495

PATIENT
  Age: 36 Year
  Sex: Male

DRUGS (4)
  1. CLOZARIL [Suspect]
     Indication: SCHIZOPHRENIA
     Dosage: UNK
     Route: 048
     Dates: start: 20020125
  2. CLOZARIL [Suspect]
     Dosage: UNK
     Route: 048
     Dates: start: 20140402
  3. AMISULPRIDE [Suspect]
     Dosage: UNK
     Dates: start: 2012
  4. PREGABALIN [Suspect]
     Dosage: UNK
     Dates: start: 2012

REACTIONS (4)
  - Viral infection [Unknown]
  - Nasopharyngitis [Unknown]
  - White blood cell count decreased [Recovered/Resolved]
  - Neutrophil count decreased [Recovered/Resolved]
